FAERS Safety Report 8812154 (Version 3)
Quarter: 2013Q1

REPORT INFORMATION
  Report Type: Spontaneous
  Country: US (occurrence: None)
  Receive Date: 20120925
  Receipt Date: 20121105
  Transmission Date: 20140127
  Serious: Yes (Other)
  Sender: FDA-Public Use
  Company Number: 2012SA068490

PATIENT
  Age: 75 Year
  Sex: Female
  Weight: 98.4 kg

DRUGS (8)
  1. ASPERCREME HEAT RELIEVING GEL [Suspect]
     Indication: PAIN IN EXTREMITY
     Route: 003
     Dates: start: 20120908, end: 20120909
  2. ATENOLOL [Concomitant]
  3. ASPIRIN [Concomitant]
  4. FISH OIL [Concomitant]
  5. YEAST [Concomitant]
  6. VITAMIN C [Concomitant]
  7. VITAMIN D3 [Concomitant]
  8. COENZYME Q10 [Concomitant]

REACTIONS (5)
  - Burning sensation [None]
  - Insomnia [None]
  - Osteoarthritis [None]
  - Pain in extremity [None]
  - Arthralgia [None]
